FAERS Safety Report 6638603-6 (Version None)
Quarter: 2010Q1

REPORT INFORMATION
  Report Type: 
  Country: None (occurrence: None)
  Receive Date: 20100316
  Receipt Date: 20100316
  Transmission Date: 20100710
  Serious: Yes (Other)
  Sender: FDA-Public Use
  Company Number: None

PATIENT
  Age: 37 Year
  Sex: Female
  Weight: 58.514 kg

DRUGS (2)
  1. CYMBALTA [Suspect]
     Indication: FIBROMYALGIA
     Dosage: 1 60MG CAPSULE 1 TIME DAY PO
     Route: 048
     Dates: start: 20100105, end: 20100205
  2. CYMBALTA [Suspect]
     Dosage: 30 MG. CAPSULE 1 TIME A DAY PO
     Route: 048
     Dates: start: 20100206, end: 20100309

REACTIONS (10)
  - ABNORMAL DREAMS [None]
  - ACTIVITIES OF DAILY LIVING IMPAIRED [None]
  - ANGER [None]
  - DIZZINESS [None]
  - DRUG WITHDRAWAL SYNDROME [None]
  - EMOTIONAL DISORDER [None]
  - FEELING ABNORMAL [None]
  - IMPAIRED DRIVING ABILITY [None]
  - NAUSEA [None]
  - NIGHTMARE [None]
